FAERS Safety Report 4594618-3 (Version None)
Quarter: 2005Q1

REPORT INFORMATION
  Report Type: 
  Country: None (occurrence: None)
  Receive Date: 20050223
  Receipt Date: 20050215
  Transmission Date: 20050727
  Serious: Yes (Death)
  Sender: FDA-Public Use
  Company Number: 163-20785-05020038

PATIENT
  Age: 59 Year
  Sex: Male

DRUGS (2)
  1. THALOMID [Suspect]
     Indication: CHRONIC LYMPHOCYTIC LEUKAEMIA
     Dosage: 100 MG, QHS, ORAL
     Route: 048
     Dates: start: 20041123, end: 20050130
  2. THALOMID [Suspect]
     Indication: LYMPHOCYTIC LYMPHOMA
     Dosage: 100 MG, QHS, ORAL
     Route: 048
     Dates: start: 20041123, end: 20050130

REACTIONS (2)
  - CARDIO-RESPIRATORY ARREST [None]
  - PYREXIA [None]
